FAERS Safety Report 5007397-2 (Version None)
Quarter: 2006Q2

REPORT INFORMATION
  Report Type: 
  Country: None (occurrence: None)
  Receive Date: 20060517
  Receipt Date: 20060511
  Transmission Date: 20061013
  Serious: Yes (Hospitalization)
  Sender: FDA-Public Use
  Company Number: 200611943GDS

PATIENT
  Age: 76 Year
  Sex: Male

DRUGS (4)
  1. ASPIRIN [Suspect]
     Indication: CORONARY ARTERY DISEASE
  2. ASPIRIN [Suspect]
     Indication: OSTEOARTHRITIS
  3. ROFECOXIB [Suspect]
     Indication: CORONARY ARTERY DISEASE
  4. ROFECOXIB [Suspect]
     Indication: OSTEOARTHRITIS

REACTIONS (1)
  - INTESTINAL DIAPHRAGM DISEASE [None]
